FAERS Safety Report 7931750-8 (Version None)
Quarter: 2011Q4

REPORT INFORMATION
  Report Type: 
  Country: None (occurrence: None)
  Receive Date: 20111121
  Receipt Date: 20111116
  Transmission Date: 20120403
  Serious: Yes (Death)
  Sender: FDA-Public Use
  Company Number: PHHY2011ES100671

PATIENT
  Age: 68 Year
  Sex: Male

DRUGS (4)
  1. ANTIFUNGALS [Concomitant]
  2. BASILIXIMAB [Suspect]
     Indication: GRAFT VERSUS HOST DISEASE
  3. ANTIBIOTICS [Concomitant]
  4. ANTIVIRALS [Concomitant]

REACTIONS (1)
  - CYTOMEGALOVIRUS INFECTION [None]
